FAERS Safety Report 8323052 (Version 2)
Quarter: 2015Q1

REPORT INFORMATION
  Report Type: Spontaneous
  Country: US (occurrence: US)
  Receive Date: 20120105
  Receipt Date: 20150304
  Transmission Date: 20150721
  Serious: Yes (Other)
  Sender: FDA-Public Use
  Company Number: US-ROCHE-1027348

PATIENT
  Age: 78 Year
  Sex: Female

DRUGS (6)
  1. METHOTREXATE [Concomitant]
     Active Substance: METHOTREXATE
  2. BONIVA [Suspect]
     Active Substance: IBANDRONATE SODIUM
     Indication: OSTEOPOROSIS
     Route: 065
  3. IMURAN [Concomitant]
     Active Substance: AZATHIOPRINE
  4. PREDNISONE. [Concomitant]
     Active Substance: PREDNISONE
  5. FOSAMAX [Suspect]
     Active Substance: ALENDRONATE SODIUM
     Indication: OSTEOPOROSIS
     Dosage: UNIT DOSE - 10 MG, 35 MG AND 70 MG
     Route: 048
     Dates: start: 1995, end: 2010
  6. FOSAMAX [Suspect]
     Active Substance: ALENDRONATE SODIUM
     Indication: RHEUMATOID ARTHRITIS

REACTIONS (4)
  - Emotional distress [Unknown]
  - Depression [Unknown]
  - Femur fracture [Unknown]
  - Femur fracture [Unknown]

NARRATIVE: CASE EVENT DATE: 20090802
